FAERS Safety Report 8989806 (Version 5)
Quarter: 2016Q3

REPORT INFORMATION
  Report Type: Report from Study
  Country: IL (occurrence: IL)
  Receive Date: 20121228
  Receipt Date: 20160720
  Transmission Date: 20161109
  Serious: Yes (Other)
  Sender: FDA-Public Use
  Company Number: IL-ROCHE-1170227

PATIENT
  Age: 72 Year
  Sex: Male
  Weight: 60 kg

DRUGS (5)
  1. RITUXIMAB [Suspect]
     Active Substance: RITUXIMAB
     Indication: CHRONIC LYMPHOCYTIC LEUKAEMIA
     Dosage: LAST DOSE OF ADMINISTRATION ON 27/AUG/2012
     Route: 042
     Dates: start: 20120730, end: 20130107
  2. CYCLOPHOSPHAMIDE. [Suspect]
     Active Substance: CYCLOPHOSPHAMIDE
     Indication: CHRONIC LYMPHOCYTIC LEUKAEMIA
     Dosage: LAST DOSE OF ADMINISTRATION ON 28/AUG/2012 - 30/AUG/2012
     Route: 042
     Dates: start: 20120731, end: 20130107
  3. FLUDARABINE [Suspect]
     Active Substance: FLUDARABINE PHOSPHATE
     Indication: CHRONIC LYMPHOCYTIC LEUKAEMIA
     Dosage: LAST DOSE OF ADMINISTRATION ON 28/AUG/2012 - 30/AUG/2012
     Route: 042
     Dates: start: 20120731, end: 20130107
  4. FOSALAN [Concomitant]
     Active Substance: ALENDRONATE SODIUM
  5. TRAZODONE [Concomitant]
     Active Substance: TRAZODONE HYDROCHLORIDE

REACTIONS (1)
  - Squamous cell carcinoma of skin [Recovered/Resolved]

NARRATIVE: CASE EVENT DATE: 20121002
